FAERS Safety Report 10796792 (Version 1)
Quarter: 2015Q1

REPORT INFORMATION
  Report Type: Report from Study
  Country: PR (occurrence: PR)
  Receive Date: 20150216
  Receipt Date: 20150216
  Transmission Date: 20150721
  Serious: No
  Sender: FDA-Public Use
  Company Number: PR-ABBVIE-14K-131-1255796-00

PATIENT
  Age: 56 Year
  Sex: Male

DRUGS (2)
  1. HYOSCYAMINE SULFATE. [Concomitant]
     Active Substance: HYOSCYAMINE SULFATE
     Indication: PRODUCT USED FOR UNKNOWN INDICATION
  2. HUMIRA [Suspect]
     Active Substance: ADALIMUMAB
     Indication: PSORIASIS
     Route: 058
     Dates: start: 20140505

REACTIONS (6)
  - Blood pressure increased [Not Recovered/Not Resolved]
  - Pruritus [Unknown]
  - Secretion discharge [Not Recovered/Not Resolved]
  - Psoriasis [Unknown]
  - Headache [Recovering/Resolving]
  - Nasopharyngitis [Not Recovered/Not Resolved]

NARRATIVE: CASE EVENT DATE: 201405
